FAERS Safety Report 15906115 (Version 3)
Quarter: 2019Q1

REPORT INFORMATION
  Report Type: Spontaneous
  Country: US (occurrence: US)
  Receive Date: 20190204
  Receipt Date: 20190326
  Transmission Date: 20190417
  Serious: Yes (Hospitalization)
  Sender: FDA-Public Use
  Company Number: US-JNJFOC-20190133422

PATIENT
  Age: 8 Decade
  Sex: Male
  Weight: 68.04 kg

DRUGS (4)
  1. VISINE (OXYMETAZOLINE HYDROCHLORIDE) [Suspect]
     Active Substance: OXYMETAZOLINE HYDROCHLORIDE
     Indication: OCULAR HYPERAEMIA
     Dosage: 1 DROP DAILY
     Route: 047
     Dates: start: 2016
  2. FAMCICLOVIR. [Concomitant]
     Active Substance: FAMCICLOVIR
     Indication: PRODUCT USED FOR UNKNOWN INDICATION
     Route: 048
  3. OLOPATADINE. [Concomitant]
     Active Substance: OLOPATADINE
     Indication: PRODUCT USED FOR UNKNOWN INDICATION
     Route: 047
  4. VISINE (OXYMETAZOLINE HYDROCHLORIDE) [Suspect]
     Active Substance: OXYMETAZOLINE HYDROCHLORIDE
     Route: 047

REACTIONS (1)
  - Retinal injury [Not Recovered/Not Resolved]

NARRATIVE: CASE EVENT DATE: 2017
